FAERS Safety Report 19817180 (Version 1)
Quarter: 2021Q3

REPORT INFORMATION
  Report Type: Report from Study
  Country: US (occurrence: US)
  Receive Date: 20210910
  Receipt Date: 20210910
  Transmission Date: 20211014
  Serious: Yes (Other)
  Sender: FDA-Public Use
  Company Number: US-JAZZ-2021-US-016721

PATIENT
  Sex: Female

DRUGS (2)
  1. XYREM [Suspect]
     Active Substance: SODIUM OXYBATE
     Indication: NARCOLEPSY
     Dosage: 2.25 GRAM, BID
     Dates: start: 202011, end: 202012
  2. XYREM [Suspect]
     Active Substance: SODIUM OXYBATE
     Dosage: 2.75 GRAM, BID
     Route: 048
     Dates: start: 202012, end: 202102

REACTIONS (4)
  - Condition aggravated [Not Recovered/Not Resolved]
  - Acne [Recovering/Resolving]
  - Hypotonic urinary bladder [Not Recovered/Not Resolved]
  - Pre-existing condition improved [Unknown]
